FAERS Safety Report 25012173 (Version 1)
Quarter: 2025Q1

REPORT INFORMATION
  Report Type: Spontaneous
  Country: JP (occurrence: JP)
  Receive Date: 20250226
  Receipt Date: 20250226
  Transmission Date: 20250409
  Serious: Yes (Hospitalization, Other)
  Sender: GLAXOSMITHKLINE
  Company Number: JP-GSK-JP2025JPN018405

PATIENT

DRUGS (22)
  1. MEPOLIZUMAB [Suspect]
     Active Substance: MEPOLIZUMAB
     Indication: Eosinophilic granulomatosis with polyangiitis
     Dosage: 300 MG, Q4W
     Dates: start: 20190704
  2. PREDONINE [Concomitant]
     Active Substance: PREDNISOLONE
     Indication: Eosinophilic granulomatosis with polyangiitis
     Route: 048
     Dates: start: 201012
  3. PREDONINE [Concomitant]
     Active Substance: PREDNISOLONE
     Dosage: 20 MG, 1D
     Route: 048
     Dates: start: 20190606, end: 20190619
  4. PREDONINE [Concomitant]
     Active Substance: PREDNISOLONE
     Dosage: 30 MG, 1D
     Route: 048
     Dates: start: 20190620, end: 20190829
  5. PREDONINE [Concomitant]
     Active Substance: PREDNISOLONE
     Dosage: 25 MG, 1D
     Route: 048
     Dates: start: 20190830, end: 20191003
  6. PREDONINE [Concomitant]
     Active Substance: PREDNISOLONE
     Dosage: 20 MG, 1D
     Route: 048
     Dates: start: 20191004
  7. FLUTIFORM [Concomitant]
     Active Substance: FLUTIFORM
     Dosage: 500 UG, 1D
     Route: 055
  8. BONALON [Concomitant]
     Active Substance: ALENDRONATE SODIUM
     Indication: Osteoporosis prophylaxis
  9. FOLIC ACID [Concomitant]
     Active Substance: FOLIC ACID
  10. LIMAPROST [Concomitant]
     Active Substance: LIMAPROST
  11. TRICHLORMETHIAZIDE [Concomitant]
     Active Substance: TRICHLORMETHIAZIDE
     Indication: Stasis dermatitis
  12. LANSOPRAZOLE [Concomitant]
     Active Substance: LANSOPRAZOLE
     Indication: Prophylaxis against gastrointestinal ulcer
  13. CLONAZEPAM [Concomitant]
     Active Substance: CLONAZEPAM
     Indication: Eosinophilic granulomatosis with polyangiitis
  14. CELECOXIB [Concomitant]
     Active Substance: CELECOXIB
     Indication: Eosinophilic granulomatosis with polyangiitis
  15. SPIRIVA RESPIMAT [Concomitant]
     Active Substance: TIOTROPIUM BROMIDE
  16. BETAMETHASONE DIPROPIONATE [Concomitant]
     Active Substance: BETAMETHASONE DIPROPIONATE
     Indication: Eosinophilic granulomatosis with polyangiitis
     Route: 050
  17. BETAMETHASONE DIPROPIONATE [Concomitant]
     Active Substance: BETAMETHASONE DIPROPIONATE
     Indication: Eosinophilic granulomatosis with polyangiitis
     Route: 050
  18. GLYCOSAMINOGLYCANS [Concomitant]
     Active Substance: GLYCOSAMINOGLYCANS
     Indication: Eosinophilic granulomatosis with polyangiitis
  19. METFORMIN HYDROCHLORIDE [Concomitant]
     Active Substance: METFORMIN HYDROCHLORIDE
  20. TENELIGLIPTIN [Concomitant]
     Active Substance: TENELIGLIPTIN
  21. VOGLIBOSE [Concomitant]
     Active Substance: VOGLIBOSE
  22. RYZODEG 70/30 [Concomitant]
     Active Substance: INSULIN ASPART\INSULIN DEGLUDEC

REACTIONS (4)
  - Pneumonia [Recovering/Resolving]
  - Infection [Recovering/Resolving]
  - Psoas abscess [Recovering/Resolving]
  - Abscess [Recovering/Resolving]

NARRATIVE: CASE EVENT DATE: 20190101
